FAERS Safety Report 4870331-X (Version None)
Quarter: 2006Q1

REPORT INFORMATION
  Report Type: 
  Country: None (occurrence: None)
  Receive Date: 20060103
  Receipt Date: 20051222
  Transmission Date: 20060701
  Serious: Yes (Hospitalization)
  Sender: FDA-Public Use
  Company Number: US-JNJFOC-20051102616

PATIENT
  Sex: Male
  Weight: 74.39 kg

DRUGS (27)
  1. INFLIXIMAB [Suspect]
     Indication: RHEUMATOID ARTHRITIS
     Route: 042
  2. INSULIN [Concomitant]
  3. FUROSEMIDE [Concomitant]
  4. CYTOXAN [Concomitant]
  5. ATACAND [Concomitant]
  6. CRESTOR [Concomitant]
  7. PLAVIX [Concomitant]
  8. VERELAN PM [Concomitant]
  9. ISOSORBIDE [Concomitant]
  10. MINOCYCLINE HCL [Concomitant]
  11. NEXIUM [Concomitant]
  12. ALBUTEROL [Concomitant]
  13. IPRATROPIUM BROMIDE [Concomitant]
  14. ADVAIR DISKUS 250/50 [Concomitant]
  15. ADVAIR DISKUS 250/50 [Concomitant]
  16. PAMIDRONATE DISODIUM [Concomitant]
  17. AMBIEN [Concomitant]
  18. CALCIUM+D [Concomitant]
  19. CALCIUM+D [Concomitant]
  20. MULTIVITAMIN [Concomitant]
  21. MULTIVITAMIN [Concomitant]
  22. MULTIVITAMIN [Concomitant]
  23. MULTIVITAMIN [Concomitant]
  24. MULTIVITAMIN [Concomitant]
  25. MULTIVITAMIN [Concomitant]
  26. MULTIVITAMIN [Concomitant]
  27. MULTIVITAMIN [Concomitant]

REACTIONS (4)
  - GASTRITIS [None]
  - GASTROOESOPHAGITIS [None]
  - NOCARDIOSIS [None]
  - PNEUMONIA [None]
